FAERS Safety Report 7245155-9 (Version None)
Quarter: 2011Q1

REPORT INFORMATION
  Report Type: 
  Country: None (occurrence: None)
  Receive Date: 20110126
  Receipt Date: 20110117
  Transmission Date: 20110831
  Serious: Yes (Death, Other)
  Sender: FDA-Public Use
  Company Number: US-NAPPMUNDI-USA-2003-0005094

PATIENT
  Age: 45 Year
  Sex: Male

DRUGS (2)
  1. HEROIN [Suspect]
     Indication: DRUG ABUSE
     Dosage: UNK
     Route: 065
  2. OXYCONTIN [Suspect]
     Indication: DRUG ABUSE
     Dosage: UNK
     Route: 065

REACTIONS (4)
  - GUN SHOT WOUND [None]
  - DRUG DEPENDENCE [None]
  - SUBSTANCE ABUSE [None]
  - VICTIM OF HOMICIDE [None]
